FAERS Safety Report 8430927 (Version 3)
Quarter: 2012Q4

REPORT INFORMATION
  Report Type: 
  Country: US (occurrence: US)
  Receive Date: 20120228
  Receipt Date: 20121024
  Transmission Date: 20130627
  Serious: Yes (Death)
  Sender: FDA-Public Use
  Company Number: PHEH2012US004675

PATIENT
  Sex: Female

DRUGS (2)
  1. RECLAST [Suspect]
     Indication: OSTEOPOROSIS
     Dosage: 5 mg/100 ml once a yearly
     Route: 042
     Dates: start: 20100106
  2. RECLAST [Suspect]
     Dosage: 5 mg/100 ml once a yearly
     Route: 042
     Dates: start: 20110131

REACTIONS (1)
  - Death [Fatal]
